FAERS Safety Report 6069247-5 (Version None)
Quarter: 2009Q1

REPORT INFORMATION
  Report Type: 
  Country: None (occurrence: None)
  Receive Date: 20090206
  Receipt Date: 20090203
  Transmission Date: 20090719
  Serious: Yes (Hospitalization)
  Sender: FDA-Public Use
  Company Number: PHEH2009US00669

PATIENT
  Sex: Female

DRUGS (6)
  1. CLOZAPINE [Suspect]
     Indication: PSYCHOTIC DISORDER
     Dosage: 325MG QAM AND 350MG QHS, BID
     Route: 048
     Dates: start: 20050211, end: 20081227
  2. CLOZAPINE [Suspect]
     Indication: AGITATION
  3. KEPPRA [Concomitant]
     Dosage: UNK
  4. ATIVAN [Concomitant]
     Dosage: UNK
  5. LOVENOX [Concomitant]
  6. RELAFEN [Concomitant]

REACTIONS (2)
  - NEUROLEPTIC MALIGNANT SYNDROME [None]
  - WHITE BLOOD CELL COUNT INCREASED [None]
